FAERS Safety Report 4347785-0 (Version None)
Quarter: 2004Q1

REPORT INFORMATION
  Report Type: 
  Country: None (occurrence: None)
  Receive Date: 20040325
  Receipt Date: 20031212
  Transmission Date: 20041129
  Serious: No
  Sender: FDA-Public Use
  Company Number: USA031254620

PATIENT
  Age: 74 Year
  Sex: Female

DRUGS (3)
  1. FORTEO [Suspect]
     Dates: start: 20030401
  2. ATENOLOL [Concomitant]
  3. CALCIUM [Concomitant]

REACTIONS (5)
  - ARTHRITIS [None]
  - BACK PAIN [None]
  - BLOOD PRESSURE INCREASED [None]
  - BONE PAIN [None]
  - DIARRHOEA [None]
